FAERS Safety Report 21397260 (Version 1)
Quarter: 2022Q3

REPORT INFORMATION
  Report Type: Spontaneous
  Country: FR (occurrence: FR)
  Receive Date: 20220930
  Receipt Date: 20220930
  Transmission Date: 20221027
  Serious: Yes (Life-Threatening, Hospitalization)
  Sender: FDA-Public Use
  Company Number: None

PATIENT
  Age: 29 Year
  Sex: Female
  Weight: 71 kg

DRUGS (4)
  1. PROPOFOL [Suspect]
     Active Substance: PROPOFOL
     Indication: Sedation
     Route: 042
     Dates: start: 20191126, end: 20191126
  2. ALFENTANIL HYDROCHLORIDE [Suspect]
     Active Substance: ALFENTANIL HYDROCHLORIDE
     Indication: Sedation
     Route: 042
     Dates: start: 20191126, end: 20191126
  3. DEXAMETHASONE [Suspect]
     Active Substance: DEXAMETHASONE
     Indication: Sedation
     Route: 042
     Dates: start: 20191126, end: 20191126
  4. KETAMINE [Suspect]
     Active Substance: KETAMINE
     Indication: Sedation
     Route: 042
     Dates: start: 20191126, end: 20191126

REACTIONS (2)
  - Anaphylactic shock [Recovered/Resolved]
  - Allergy test negative [Recovered/Resolved]

NARRATIVE: CASE EVENT DATE: 20191126
